FAERS Safety Report 18548867 (Version 1)
Quarter: 2020Q4

REPORT INFORMATION
  Report Type: Spontaneous
  Country: GT (occurrence: GT)
  Receive Date: 20201125
  Receipt Date: 20201125
  Transmission Date: 20210114
  Serious: Yes (Other)
  Sender: FDA-Public Use
  Company Number: GT-ABBVIE-20K-069-3659786-00

PATIENT
  Age: 56 Year
  Sex: Female

DRUGS (2)
  1. VENCLEXTA [Suspect]
     Active Substance: VENETOCLAX
     Indication: ACUTE MYELOID LEUKAEMIA
     Route: 048
  2. AZACITIDINA [Concomitant]
     Active Substance: AZACITIDINE
     Indication: ACUTE MYELOID LEUKAEMIA
     Route: 042

REACTIONS (10)
  - Neutropenia [Recovering/Resolving]
  - Ejection fraction abnormal [Unknown]
  - Abdominal pain lower [Recovering/Resolving]
  - Erythropoiesis abnormal [Unknown]
  - Anaemia [Recovering/Resolving]
  - Bone marrow failure [Recovering/Resolving]
  - Leukopenia [Recovering/Resolving]
  - Off label use [Recovering/Resolving]
  - Isocitrate dehydrogenase gene mutation [Unknown]
  - Nucleated red cells [Recovering/Resolving]

NARRATIVE: CASE EVENT DATE: 201812
